FAERS Safety Report 10375013 (Version 1)
Quarter: 2014Q1

REPORT INFORMATION
  Report Type: Spontaneous
  Country: US (occurrence: None)
  Receive Date: 20140306
  Receipt Date: 20140306
  Transmission Date: 20141002
  Serious: Yes (Other)
  Sender: FDA-Public Use
  Company Number: 163-21880-13121612

PATIENT
  Age: 74 Year
  Sex: Female

DRUGS (8)
  1. REVLIMID [Suspect]
     Indication: PLASMA CELL MYELOMA
     Dosage: 21 IN 28 D
     Route: 048
     Dates: start: 201010, end: 201303
  2. DEXMATHASONE [Concomitant]
  3. LORAZEPAM [Concomitant]
  4. HUMULIN R (INSULIN HUMAN) [Concomitant]
  5. HUMILIN N (INSULIN HUMAN INJECTION, ISOPHANE) [Concomitant]
  6. TIMOLOL (SOLUTION) [Concomitant]
  7. LATANOPROST (SOLUTION) [Concomitant]
  8. LOVENOX (HEPARIN-FRACTION, SODIUM SALT) [Concomitant]

REACTIONS (1)
  - Diarrhoea [None]
